FAERS Safety Report 5496506-7 (Version None)
Quarter: 2007Q4

REPORT INFORMATION
  Report Type: 
  Country: None (occurrence: None)
  Receive Date: 20071025
  Receipt Date: 20070924
  Transmission Date: 20080405
  Serious: No
  Sender: FDA-Public Use
  Company Number: A0654590A

PATIENT
  Age: 61 Year
  Sex: Male

DRUGS (5)
  1. ADVAIR DISKUS 100/50 [Suspect]
     Indication: DRUG USE FOR UNKNOWN INDICATION
     Dosage: 1PUFF TWICE PER DAY
     Route: 055
  2. HYDROCHLOROTHIAZIDE [Concomitant]
  3. AZATHIOPRINE [Concomitant]
  4. UROCIT-K [Concomitant]
  5. UROXATRAL [Concomitant]

REACTIONS (5)
  - CHEST DISCOMFORT [None]
  - HEART RATE INCREASED [None]
  - INSOMNIA [None]
  - PALPITATIONS [None]
  - PHARMACEUTICAL PRODUCT COMPLAINT [None]
